FAERS Safety Report 9735174 (Version 1)
Quarter: 2013Q4

REPORT INFORMATION
  Report Type: Spontaneous
  Country: GB (occurrence: None)
  Receive Date: 20131204
  Receipt Date: 20131204
  Transmission Date: 20140711
  Serious: Yes (Hospitalization)
  Sender: FDA-Public Use
  Company Number: 2037417

PATIENT
  Age: 47 Year
  Sex: Male
  Weight: 136 kg

DRUGS (18)
  1. DACARBAZINE [Suspect]
     Indication: MALIGNANT MELANOMA
     Dosage: 1000 MG/KG MILLIGRAM(S)/KILOGRAM  (UNKNOWN) ITRAVENOUS (NOT OTHERWISE SPECIFIED)
     Route: 042
     Dates: start: 20110809, end: 20110906
  2. (INVESTIGATIONAL DRUG) [Suspect]
     Indication: MALIGNANT MELANOMA
     Dosage: 20 MG MILLIGRAM(S) (1 DAY) ORAL
     Route: 048
     Dates: start: 20110809, end: 20110919
  3. METFORMIN [Concomitant]
  4. (GABAPENTIN) [Concomitant]
  5. (DIAZEPAM) [Concomitant]
  6. (BACLOFEN) [Concomitant]
  7. (ZOPICLONE) [Concomitant]
  8. (RAMIPRIL) [Concomitant]
  9. GLICLAZIDE) [Concomitant]
  10. (FLUCLOXACILLIN) [Concomitant]
  11. (CLONAZEPAM) [Concomitant]
  12. CITALOPRAM [Concomitant]
  13. (DEXAMETHASONE) [Concomitant]
  14. (ONDANSETRON) [Concomitant]
  15. (CLINDAMYCIN) [Concomitant]
  16. (PIOGLITAZONE) [Concomitant]
  17. (AMLODIPINE) [Concomitant]
  18. (DEXAMETHASONE) [Concomitant]

REACTIONS (4)
  - Abscess [None]
  - Cellulitis [None]
  - Malignant melanoma stage IV [None]
  - Malignant neoplasm progression [None]
